FAERS Safety Report 23566068 (Version 1)
Quarter: 2024Q1

REPORT INFORMATION
  Report Type: Spontaneous
  Country: CN (occurrence: None)
  Receive Date: 20240226
  Receipt Date: 20240226
  Transmission Date: 20240410
  Serious: Yes (Hospitalization)
  Sender: FDA-Public Use
  Company Number: 2024A042904

PATIENT
  Age: 1516 Day
  Sex: Female
  Weight: 15 kg

DRUGS (5)
  1. TERBUTALINE SULFATE [Suspect]
     Active Substance: TERBUTALINE SULFATE
     Indication: Pneumonia
     Route: 055
     Dates: start: 20240207, end: 20240208
  2. BUDESONIDE [Suspect]
     Active Substance: BUDESONIDE
     Indication: Pneumonia
     Route: 055
     Dates: start: 20240207, end: 20240208
  3. IPRATROPIUM BROMIDE [Suspect]
     Active Substance: IPRATROPIUM BROMIDE\IPRATROPIUM BROMIDE ANHYDROUS
     Indication: Pneumonia
     Route: 055
     Dates: start: 20240207, end: 20240208
  4. AZITHROMYCIN [Suspect]
     Active Substance: AZITHROMYCIN
     Indication: Pneumonia
     Route: 055
     Dates: start: 20240207, end: 20240208
  5. DEXTROSE [Concomitant]
     Active Substance: DEXTROSE\DEXTROSE MONOHYDRATE
     Indication: Menstruation normal
     Route: 055
     Dates: start: 20240207, end: 20240208

REACTIONS (3)
  - Rash pruritic [Recovered/Resolved]
  - Peripheral swelling [Recovered/Resolved]
  - Erythema [Recovered/Resolved]

NARRATIVE: CASE EVENT DATE: 20240208
